FAERS Safety Report 8518603-1 (Version None)
Quarter: 2012Q3

REPORT INFORMATION
  Report Type: 
  Country: None (occurrence: None)
  Receive Date: 20120718
  Receipt Date: 20110930
  Transmission Date: 20120928
  Serious: Yes (Other)
  Sender: FDA-Public Use
  Company Number: US-BRISTOL-MYERS SQUIBB COMPANY-15611551

PATIENT

DRUGS (1)
  1. COUMADIN [Suspect]
     Dosage: 3MG:0G59173A,2MG-0B60594A,0C64758B,0J63594B,6MG-9H45288A,9H45283C,9H45286A,2.5MG-0059800GF,0D59806F

REACTIONS (1)
  - PROTHROMBIN TIME RATIO INCREASED [None]
